FAERS Safety Report 5961541-9 (Version None)
Quarter: 2008Q4

REPORT INFORMATION
  Report Type: 
  Country: None (occurrence: None)
  Receive Date: 20081121
  Receipt Date: 20081114
  Transmission Date: 20090506
  Serious: Yes (Disabling)
  Sender: FDA-Public Use
  Company Number: A0757493A

PATIENT
  Age: 44 Year
  Sex: Male

DRUGS (6)
  1. CARVEDILOL [Suspect]
     Indication: DRUG USE FOR UNKNOWN INDICATION
     Route: 065
     Dates: start: 20070101, end: 20080901
  2. COREG [Suspect]
     Indication: DRUG USE FOR UNKNOWN INDICATION
     Dates: start: 20070101, end: 20080901
  3. JANUVIA [Concomitant]
     Dosage: 100MG PER DAY
  4. AMARYL [Concomitant]
     Dosage: 1MG PER DAY
  5. METFORMIN HCL [Concomitant]
     Dosage: 1000MG PER DAY
  6. ZESTRIL [Concomitant]
     Dosage: 5MG PER DAY

REACTIONS (4)
  - BLOOD PRESSURE INCREASED [None]
  - CHEST PAIN [None]
  - MALAISE [None]
  - VOMITING [None]
